FAERS Safety Report 6137805-5 (Version None)
Quarter: 2009Q1

REPORT INFORMATION
  Report Type: 
  Country: None (occurrence: None)
  Receive Date: 20090331
  Receipt Date: 20090325
  Transmission Date: 20090719
  Serious: Yes (Hospitalization, Other)
  Sender: FDA-Public Use
  Company Number: BR-JNJFOC-20081102490

PATIENT
  Sex: Female
  Weight: 7.8 kg

DRUGS (1)
  1. MICRONOR [Suspect]
     Indication: DRUG EXPOSURE DURING PREGNANCY

REACTIONS (3)
  - GASTROOESOPHAGEAL REFLUX DISEASE [None]
  - LACTOSE INTOLERANCE [None]
  - PREMATURE BABY [None]
